FAERS Safety Report 9988104 (Version 1)
Quarter: 2014Q1

REPORT INFORMATION
  Report Type: Report from Study
  Country: KR (occurrence: KR)
  Receive Date: 20140308
  Receipt Date: 20140308
  Transmission Date: 20141002
  Serious: Yes (Death)
  Sender: FDA-Public Use
  Company Number: KR-ROCHE-1362242

PATIENT
  Sex: 0

DRUGS (3)
  1. TRASTUZUMAB [Suspect]
     Indication: GASTRIC CANCER
     Dosage: ON DAY 1 IN CYCLE 1
     Route: 042
  2. CAPECITABINE [Suspect]
     Indication: GASTRIC CANCER
     Dosage: ON DAYS 1-14
     Route: 048
  3. OXALIPLATIN [Suspect]
     Indication: GASTRIC CANCER
     Dosage: ON DAY 1, EVERY 3 WEEKS
     Route: 042

REACTIONS (2)
  - Diarrhoea [Fatal]
  - Sepsis [Fatal]
